FAERS Safety Report 5188292-5 (Version None)
Quarter: 2006Q4

REPORT INFORMATION
  Report Type: 
  Country: None (occurrence: None)
  Receive Date: 20061221
  Receipt Date: 20061220
  Transmission Date: 20070319
  Serious: Yes (Hospitalization)
  Sender: FDA-Public Use
  Company Number: FR-GLAXOSMITHKLINE-B0451345A

PATIENT
  Age: 63 Year
  Sex: Male
  Weight: 83 kg

DRUGS (2)
  1. AUGMENTIN '125' [Suspect]
     Indication: LYMPHADENITIS
     Dosage: 1G THREE TIMES PER DAY
     Route: 048
     Dates: start: 20061116, end: 20061120
  2. CIPROFLOXACIN [Suspect]
     Indication: LYMPHADENITIS
     Dosage: 500MG TWICE PER DAY
     Route: 048
     Dates: start: 20061116, end: 20061121

REACTIONS (3)
  - PURPURA [None]
  - RASH MACULO-PAPULAR [None]
  - RASH MORBILLIFORM [None]
